FAERS Safety Report 17162506 (Version 1)
Quarter: 2019Q4

REPORT INFORMATION
  Report Type: Spontaneous
  Country: US (occurrence: US)
  Receive Date: 20191216
  Receipt Date: 20191216
  Transmission Date: 20200122
  Serious: Yes (Hospitalization)
  Sender: FDA-Public Use
  Company Number: None

PATIENT
  Age: 74 Year
  Sex: Female

DRUGS (4)
  1. MYFORTIC [Suspect]
     Active Substance: MYCOPHENOLATE SODIUM
     Indication: RENAL TRANSPLANT
     Route: 048
     Dates: start: 20190225
  2. ALPRAZOLAM,ASPIRIN,FOLIC ACID,CLOPIDOGREL [Concomitant]
  3. METOPROL,OMPERAZOLE,PREDNISONE,RENA-VITE,VESICARE [Concomitant]
  4. HUMALOG,LIPITOR,LOPERAMIDE,LOSARTAN [Concomitant]

REACTIONS (2)
  - Fall [None]
  - Hip fracture [None]

NARRATIVE: CASE EVENT DATE: 20191127
